FAERS Safety Report 21475025 (Version 5)
Quarter: 2022Q4

REPORT INFORMATION
  Report Type: Report from Study
  Country: PR (occurrence: PR)
  Receive Date: 20221019
  Receipt Date: 20221215
  Transmission Date: 20230113
  Serious: Yes (Hospitalization)
  Sender: FDA-Public Use
  Company Number: PR-ABBVIE-4142514

PATIENT
  Sex: Female
  Weight: 60 kg

DRUGS (1)
  1. VENCLEXTA [Suspect]
     Active Substance: VENETOCLAX
     Indication: Acute myeloid leukaemia
     Dosage: LAST DATE 2022
     Route: 048
     Dates: start: 202210, end: 2022

REACTIONS (8)
  - Haemoglobin decreased [Recovering/Resolving]
  - Platelet count decreased [Recovering/Resolving]
  - Pyrexia [Unknown]
  - Vomiting [Unknown]
  - Diarrhoea [Unknown]
  - Bone pain [Unknown]
  - Abdominal discomfort [Unknown]
  - Abdominal pain [Unknown]
